FAERS Safety Report 5070248-4 (Version None)
Quarter: 2006Q3

REPORT INFORMATION
  Report Type: 
  Country: None (occurrence: None)
  Receive Date: 20060714
  Receipt Date: 20060409
  Transmission Date: 20061208
  Serious: No
  Sender: FDA-Public Use
  Company Number: 2006SP001622

PATIENT
  Age: 63 Year
  Sex: Female

DRUGS (5)
  1. LUNESTA [Suspect]
     Indication: INSOMNIA
     Dosage: SEE IMAGE
     Route: 048
     Dates: start: 20060408, end: 20060408
  2. LUNESTA [Suspect]
     Indication: INSOMNIA
     Dosage: SEE IMAGE
     Route: 048
     Dates: start: 20060408, end: 20060408
  3. SUMATRIPTAN SUCCINATE [Concomitant]
  4. TOPAMAX [Concomitant]
  5. TRAZODONE HCL [Concomitant]

REACTIONS (1)
  - INITIAL INSOMNIA [None]
